FAERS Safety Report 9838634 (Version 2)
Quarter: 2014Q1

REPORT INFORMATION
  Report Type: Spontaneous
  Country: US (occurrence: US)
  Receive Date: 20140123
  Receipt Date: 20140314
  Transmission Date: 20141002
  Serious: No
  Sender: FDA-Public Use
  Company Number: US-PFIZER INC-2014017065

PATIENT
  Age: 82 Year
  Sex: Female
  Weight: 57.6 kg

DRUGS (4)
  1. ADVIL COLD AND SINUS [Suspect]
     Indication: NASOPHARYNGITIS
     Dosage: 200/30MG, AS NEEDED
     Route: 048
     Dates: start: 20140116
  2. ADVIL COLD AND SINUS [Suspect]
     Indication: SNEEZING
  3. BABY ASPIRIN [Concomitant]
     Dosage: UNK, ONCE A DAY
  4. METOPROLOL [Concomitant]
     Dosage: UNK, ONCE A DAY

REACTIONS (1)
  - Drug effect incomplete [Unknown]
